FAERS Safety Report 4974703-4 (Version None)
Quarter: 2006Q2

REPORT INFORMATION
  Report Type: 
  Country: None (occurrence: None)
  Receive Date: 20060410
  Receipt Date: 20060324
  Transmission Date: 20061013
  Serious: Yes (Death)
  Sender: FDA-Public Use
  Company Number: DEU-2006-0002093

PATIENT
  Age: 61 Year
  Sex: Male

DRUGS (1)
  1. THEOPHYLLINE [Suspect]

REACTIONS (3)
  - HYPOTENSION [None]
  - TACHYCARDIA [None]
  - VENTRICULAR FIBRILLATION [None]
